FAERS Safety Report 16819562 (Version 16)
Quarter: 2020Q2

REPORT INFORMATION
  Report Type: Report from Study
  Country: FR (occurrence: FR)
  Receive Date: 20190917
  Receipt Date: 20200623
  Transmission Date: 20200713
  Serious: Yes (Death, Hospitalization)
  Sender: FDA-Public Use
  Company Number: FR-EISAI MEDICAL RESEARCH-EC-2019-062248

PATIENT
  Age: 77 Year
  Sex: Female
  Weight: 52.5 kg

DRUGS (16)
  1. LENVATINIB [Suspect]
     Active Substance: LENVATINIB
     Indication: MALIGNANT MELANOMA STAGE IV
  2. PEMBROLIZUMAB. [Suspect]
     Active Substance: PEMBROLIZUMAB
     Indication: MALIGNANT MELANOMA STAGE III
     Route: 041
     Dates: start: 20190806, end: 20190806
  3. XARELTO [Concomitant]
     Active Substance: RIVAROXABAN
  4. LENVATINIB [Suspect]
     Active Substance: LENVATINIB
     Indication: MALIGNANT MELANOMA STAGE III
     Route: 048
     Dates: start: 20190806, end: 20190909
  5. PEMBROLIZUMAB. [Suspect]
     Active Substance: PEMBROLIZUMAB
     Indication: MALIGNANT MELANOMA STAGE IV
     Route: 041
     Dates: start: 20190909, end: 20190909
  6. SEROPLEX [Suspect]
     Active Substance: ESCITALOPRAM OXALATE
     Indication: DEPRESSION
     Dates: start: 201901, end: 20190909
  7. HUMALOG [Concomitant]
     Active Substance: INSULIN LISPRO
  8. HUMALOG [Concomitant]
     Active Substance: INSULIN LISPRO
  9. XARELTO [Concomitant]
     Active Substance: RIVAROXABAN
     Dates: start: 201907
  10. ZYMAD [Concomitant]
     Active Substance: CHOLECALCIFEROL
  11. ZYMAD [Concomitant]
     Active Substance: CHOLECALCIFEROL
  12. XARELTO [Concomitant]
     Active Substance: RIVAROXABAN
  13. ZYMAD [Concomitant]
     Active Substance: CHOLECALCIFEROL
     Dates: start: 201901
  14. QUINAPRIL HYDROCHLORIDE. [Concomitant]
     Active Substance: QUINAPRIL HYDROCHLORIDE
     Dates: start: 201907
  15. HUMALOG [Concomitant]
     Active Substance: INSULIN LISPRO
     Dates: start: 201901
  16. TRESIBA [Concomitant]
     Active Substance: INSULIN DEGLUDEC
     Dates: start: 20190825

REACTIONS (3)
  - Oxygen saturation decreased [Recovered/Resolved]
  - Pyrexia [Recovered/Resolved]
  - Electrocardiogram QT prolonged [Recovered/Resolved]

NARRATIVE: CASE EVENT DATE: 20190909
